FAERS Safety Report 9257367 (Version 2)
Quarter: 2013Q3

REPORT INFORMATION
  Report Type: Spontaneous
  Country: US (occurrence: US)
  Receive Date: 20130426
  Receipt Date: 20130910
  Transmission Date: 20140515
  Serious: Yes (Hospitalization, Other)
  Sender: FDA-Public Use
  Company Number: US-ASTRAZENECA-2013SE27571

PATIENT
  Sex: Female
  Weight: 87.5 kg

DRUGS (12)
  1. NEXIUM [Suspect]
     Indication: GASTROOESOPHAGEAL REFLUX DISEASE
     Dosage: 40MG MORE THAN 2 TIMES A DAY.
     Route: 048
  2. NEXIUM [Suspect]
     Indication: GASTROOESOPHAGEAL REFLUX DISEASE
     Route: 048
     Dates: start: 20050929
  3. CENTRUM MULTIVITAMINS [Concomitant]
  4. IRON SUPPLEMENTS [Concomitant]
  5. CALCIUM CITRATE [Concomitant]
  6. VIT D [Concomitant]
  7. PHENTERMINE [Concomitant]
     Dosage: 1/2 TABLET BY MOUTH TWICE DAILY
     Dates: start: 20120712
  8. HYDROCHLOROTHIAZIDE [Concomitant]
     Dates: start: 20120712
  9. DOXYCYCLINE HYCLATE [Concomitant]
     Dates: start: 20120305
  10. FLUCONAZOLE [Concomitant]
     Dosage: 200 MG TAKE 1 TABLET BY MOUTH EVERY OTHER DAY FOR 3 DAYS THEN EVERY WEEK FOR 8 WEEKS.
     Dates: start: 20100128
  11. ACARBOSE [Concomitant]
     Dates: start: 20120315
  12. BENZONATATE [Concomitant]
     Dosage: 37.5 MG TAKE 1/2 TABLET BY MOUTH NOW THEN REPEAT IN 3 DAYS

REACTIONS (8)
  - Neoplasm malignant [Unknown]
  - Gastric disorder [Unknown]
  - Osteoporosis [Unknown]
  - Bone disorder [Unknown]
  - Ankle fracture [Unknown]
  - Calcium deficiency [Unknown]
  - Arthritis [Unknown]
  - Stress [Unknown]
